FAERS Safety Report 7465825-7 (Version None)
Quarter: 2011Q2

REPORT INFORMATION
  Report Type: 
  Country: None (occurrence: None)
  Receive Date: 20110509
  Receipt Date: 20100416
  Transmission Date: 20111010
  Serious: No
  Sender: FDA-Public Use
  Company Number: US-ALEXION-A201000436

PATIENT
  Sex: Female

DRUGS (10)
  1. SOLIRIS [Suspect]
     Indication: PAROXYSMAL NOCTURNAL HAEMOGLOBINURIA
     Dosage: 600 MG, QW
     Route: 042
     Dates: start: 20100111, end: 20100201
  2. CALCIUM [Concomitant]
     Dosage: 600 MG, QD
     Route: 048
  3. MICROGESTIN 1.5/30 [Concomitant]
     Dosage: UNK
     Route: 038
  4. OMEPRAZOLE [Concomitant]
     Dosage: 20 MG, QD
  5. IRON [Concomitant]
     Dosage: UNK
  6. PREDNISONE [Concomitant]
     Dosage: UNK
     Dates: start: 20000101, end: 20100331
  7. PRENATAL VITAMINS                  /01549301/ [Concomitant]
     Dosage: UNK
     Route: 048
  8. COUMADIN [Concomitant]
     Dosage: 10 MG, QD
     Route: 048
  9. BACTRIM DS [Concomitant]
     Dosage: 3 TIMES WEEKLY
     Route: 048
  10. SOLIRIS [Suspect]
     Dosage: 900 MG, UNK
     Route: 042
     Dates: start: 20100208

REACTIONS (3)
  - ARTHRALGIA [None]
  - CHEST PAIN [None]
  - MUSCULOSKELETAL STIFFNESS [None]
